FAERS Safety Report 16289859 (Version 1)
Quarter: 2019Q2

REPORT INFORMATION
  Report Type: Report from Study
  Country: CO (occurrence: CO)
  Receive Date: 20190509
  Receipt Date: 20190509
  Transmission Date: 20190711
  Serious: Yes (Other)
  Sender: FDA-Public Use
  Company Number: CO-JNJFOC-20181217483

PATIENT
  Age: 65 Year
  Sex: Male
  Weight: 100 kg

DRUGS (3)
  1. ZYTIGA [Suspect]
     Active Substance: ABIRATERONE ACETATE
     Indication: PROSTATE CANCER METASTATIC
     Route: 048
     Dates: start: 20171015, end: 201810
  2. PREDNISOLONE. [Concomitant]
     Active Substance: PREDNISOLONE
     Indication: PROSTATE CANCER METASTATIC
     Route: 048
     Dates: start: 20171015, end: 20190406
  3. ZYTIGA [Suspect]
     Active Substance: ABIRATERONE ACETATE
     Indication: PROSTATE CANCER METASTATIC
     Route: 048
     Dates: start: 20181010, end: 20190406

REACTIONS (9)
  - Urinary retention [Recovering/Resolving]
  - Prostatic specific antigen increased [Recovering/Resolving]
  - Pain [Recovering/Resolving]
  - Thrombosis [Recovering/Resolving]
  - Dyspnoea [Recovering/Resolving]
  - Abdominal distension [Recovering/Resolving]
  - Nephrolithiasis [Recovering/Resolving]
  - Haemorrhage urinary tract [Recovering/Resolving]
  - Testicular pain [Recovering/Resolving]

NARRATIVE: CASE EVENT DATE: 201812
